FAERS Safety Report 7411116-X (Version None)
Quarter: 2011Q2

REPORT INFORMATION
  Report Type: 
  Country: None (occurrence: None)
  Receive Date: 20110413
  Receipt Date: 20100225
  Transmission Date: 20111010
  Serious: Yes (Death)
  Sender: FDA-Public Use
  Company Number: US-BRISTOL-MYERS SQUIBB COMPANY-14972921

PATIENT
  Sex: Male

DRUGS (9)
  1. HYDROCHLOROTHIAZIDE [Concomitant]
     Route: 048
  2. SIMVASTATIN [Concomitant]
     Route: 048
  3. RADIATION THERAPY [Concomitant]
  4. ACETAMINOPHEN [Concomitant]
     Indication: PREMEDICATION
     Route: 048
  5. ERBITUX [Suspect]
     Indication: HEAD AND NECK CANCER
     Dosage: LOADING DOSE OF 400 MG/METER SQUARED=784 MG
     Route: 042
     Dates: start: 20100204
  6. LISINOPRIL [Concomitant]
     Route: 048
  7. NIFEDIPINE [Concomitant]
     Dosage: NIFEDIPINE 30 MG SUSTAINED RELEASE CAPS
  8. BENADRYL [Concomitant]
     Indication: PREMEDICATION
     Route: 042
  9. DEXAMETHASONE [Concomitant]
     Indication: PREMEDICATION
     Route: 042

REACTIONS (2)
  - HYPERSENSITIVITY [None]
  - HYPOXIC-ISCHAEMIC ENCEPHALOPATHY [None]
